FAERS Safety Report 18325454 (Version 1)
Quarter: 2020Q3

REPORT INFORMATION
  Report Type: Spontaneous
  Country: IS (occurrence: IS)
  Receive Date: 20200929
  Receipt Date: 20200929
  Transmission Date: 20201103
  Serious: Yes (Life-Threatening, Hospitalization)
  Sender: FDA-Public Use
  Company Number: IS-PFIZER INC-2020372200

PATIENT
  Age: 51 Year
  Sex: Female

DRUGS (27)
  1. FOLSYRA EVOLAN [Concomitant]
     Dosage: 5 MG, WEEKLY (1 X 1 ON TUESDAYS)
  2. PRIVIGEN [Concomitant]
     Active Substance: HUMAN IMMUNOGLOBULIN G
     Dosage: 30 G, EVERY 3 WEEKS
  3. CYMBALTA [Concomitant]
     Active Substance: DULOXETINE HYDROCHLORIDE
     Dosage: 30 MG, 1X/DAY (1 X 1)
  4. JANUVIA [Concomitant]
     Active Substance: SITAGLIPTIN PHOSPHATE
     Dosage: 100 MG, 1X/DAY (1X1)
  5. METFORMIN BLUEFISH [METFORMIN] [Concomitant]
     Dosage: 1000 MG, EVERY 0.5 DAY (1X2)
  6. MICROGYN [Concomitant]
     Active Substance: ETHINYL ESTRADIOL\LEVONORGESTREL
     Dosage: DAILY (1X1)
  7. DECORTIN H [Concomitant]
     Active Substance: PREDNISOLONE
     Dosage: 10 MG, 1X/DAY (2 X 1)
  8. ATACOR [Concomitant]
     Active Substance: ATORVASTATIN CALCIUM
     Dosage: 20 MG, 1X/DAY (1 X 1 IN THE MORNING)
  9. MELATONIN VITABALANS [Concomitant]
     Dosage: 5 MG, 1X/DAY(1 X 1 IN THE EVENING BEFORE SLEEPING)
  10. LOPID [Suspect]
     Active Substance: GEMFIBROZIL
     Indication: BLOOD TRIGLYCERIDES INCREASED
     Dosage: 300 MG, EVERY 0.5 DAY (300MG X 2)
     Dates: start: 20200816, end: 20200902
  11. ESOMEPRAZOL KRKA [Concomitant]
     Dosage: 40 MG, EVERY 0.5 DAY (1X2)
  12. CONCERTA [Concomitant]
     Active Substance: METHYLPHENIDATE HYDROCHLORIDE
     Dosage: 27 MG, 1X/DAY (27 MG STRENGTH IN THE AFTERNOON)
  13. LYRICA [Concomitant]
     Active Substance: PREGABALIN
     Dosage: 600 MG, DAILY (150 MG + 150 MG + 300 MG (600 MG/24 HOURS))
  14. LEVAXIN [Concomitant]
     Active Substance: LEVOTHYROXINE SODIUM
     Dosage: DOSE ACCORDING TO BLOOD MEASUREMENTS
  15. KALEORID [Concomitant]
     Active Substance: POTASSIUM CHLORIDE
     Dosage: 1500 MG, 1X/DAY (2 X 1)
  16. JARDIANCE [Suspect]
     Active Substance: EMPAGLIFLOZIN
     Indication: TYPE 2 DIABETES MELLITUS
     Dosage: 25 MG, 1X/DAY (25 MG X 1)
     Dates: end: 20200902
  17. XARELTO [Concomitant]
     Active Substance: RIVAROXABAN
     Dosage: 20 MG, 1X/DAY (1 X 1 IN THE MORNING)
  18. MOVICOL [Concomitant]
     Active Substance: POLYETHYLENE GLYCOL 3350\POTASSIUM CHLORIDE\SODIUM BICARBONATE\SODIUM CHLORIDE
     Indication: CONSTIPATION
     Dosage: 13.8 G, ALTERNATE DAY (1 X 2 FOR CONSTIPATION)
  19. CONCERTA [Concomitant]
     Active Substance: METHYLPHENIDATE HYDROCHLORIDE
     Dosage: 54 MG, 1X/DAY (IN THE MORNING)
  20. BETOLVEX [CYANOCOBALAMIN] [Concomitant]
     Dosage: 1 MG, 1X/DAY (1 X 1 IN THE MORNING)
  21. NORGESIC [ACETYLSALICYLIC ACID;CAFFEINE;ORPHENADRINE CITRATE] [Concomitant]
     Dosage: 2X3, 3X/DAY (EVERY 8 HOURS)
  22. METHOTREXATE PFIZER [METHOTREXATE] [Concomitant]
     Active Substance: METHOTREXATE
     Dosage: 22.5 MG, WEEKLY (22.5 MG ON TUESDAYS)
  23. VOLTARENE [Concomitant]
     Dosage: AS NEEDED
  24. HUMIRA [Concomitant]
     Active Substance: ADALIMUMAB
     Dosage: 40 MG, WEEKLY (40 MG ONCE PER WEEK)
  25. MAGNESIA MEDIC [Concomitant]
     Dosage: 1000 MG, 1X/DAY (2 X 1 IN THE EVENING)
  26. AMITRIPTYLIN ABCUR [Concomitant]
     Active Substance: AMITRIPTYLINE HYDROCHLORIDE
     Dosage: 10 MG, 1X/DAY (1 X 1 IN THE EVENING BEFORE SLEEPING)
  27. MICROLAX [SODIUM CITRATE;SODIUM LAURYL SULFOACETATE] [Concomitant]
     Indication: CONSTIPATION
     Dosage: 1 TUBE, AS NEEDED

REACTIONS (3)
  - Diabetic ketoacidosis [Recovered/Resolved]
  - Malaise [Recovered/Resolved]
  - Dyspnoea [Recovered/Resolved]

NARRATIVE: CASE EVENT DATE: 20200831
